FAERS Safety Report 13337754 (Version 1)
Quarter: 2017Q1

REPORT INFORMATION
  Report Type: Spontaneous
  Country: DE (occurrence: DE)
  Receive Date: 20170315
  Receipt Date: 20170315
  Transmission Date: 20170428
  Serious: Yes (Other)
  Sender: FDA-Public Use
  Company Number: DE-ASTELLAS-2017US009376

PATIENT
  Age: 41 Year

DRUGS (2)
  1. TACROLIMUS. [Suspect]
     Active Substance: TACROLIMUS
     Indication: GRAFT VERSUS HOST DISEASE
     Dosage: UNK UNK, UNKNOWN FREQ.
     Route: 065
  2. INFLIXIMAB [Concomitant]
     Active Substance: INFLIXIMAB
     Indication: GRAFT VERSUS HOST DISEASE IN GASTROINTESTINAL TRACT
     Dosage: UNK, UNKNOWN FREQ.
     Route: 065

REACTIONS (6)
  - Thrombotic microangiopathy [Recovered/Resolved]
  - Chronic graft versus host disease in skin [Unknown]
  - Parvovirus B19 infection [Not Recovered/Not Resolved]
  - Off label use [Unknown]
  - Aplasia pure red cell [Not Recovered/Not Resolved]
  - Chronic graft versus host disease [Unknown]
